FAERS Safety Report 19656637 (Version 1)
Quarter: 2021Q3

REPORT INFORMATION
  Report Type: Spontaneous
  Country: US (occurrence: US)
  Receive Date: 20210804
  Receipt Date: 20210804
  Transmission Date: 20211014
  Serious: No
  Sender: FDA-Public Use
  Company Number: US-PHARMING-PHAUS2021000382

PATIENT

DRUGS (1)
  1. RUCONEST [Suspect]
     Active Substance: HUMAN C1-ESTERASE INHIBITOR
     Indication: HEREDITARY ANGIOEDEMA
     Dosage: 4200 IU, DAILY PRN
     Route: 042
     Dates: start: 20160203

REACTIONS (3)
  - Depression [Unknown]
  - Vascular access site complication [Unknown]
  - Staphylococcal skin infection [Unknown]
